FAERS Safety Report 17544291 (Version 1)
Quarter: 2020Q1

REPORT INFORMATION
  Report Type: Spontaneous
  Country: US (occurrence: US)
  Receive Date: 20200316
  Receipt Date: 20200316
  Transmission Date: 20200409
  Serious: No
  Sender: FDA-Public Use
  Company Number: US-MYLANLABS-2020M1024913

PATIENT
  Sex: Female

DRUGS (1)
  1. CLONIDINE TRANSDERMAL SYSTEM [Suspect]
     Active Substance: CLONIDINE
     Indication: HYPERTENSION
     Dosage: UNK (CHANGE EVERY 7 DAYS)
     Route: 062
     Dates: start: 201909

REACTIONS (5)
  - Application site erythema [Unknown]
  - Application site vesicles [Unknown]
  - Application site discolouration [Unknown]
  - Application site irritation [Recovering/Resolving]
  - Application site hypersensitivity [Unknown]

NARRATIVE: CASE EVENT DATE: 201910
